FAERS Safety Report 14688199 (Version 1)
Quarter: 2018Q1

REPORT INFORMATION
  Report Type: Report from Study
  Country: None (occurrence: BR)
  Receive Date: 20180328
  Receipt Date: 20180328
  Transmission Date: 20180509
  Serious: Yes (Other)
  Sender: FDA-Public Use
  Company Number: BR-ABBVIE-18K-020-2221884-00

PATIENT
  Age: 35 Year
  Sex: Female

DRUGS (1)
  1. HUMIRA [Suspect]
     Active Substance: ADALIMUMAB
     Indication: PSORIATIC ARTHROPATHY
     Route: 058
     Dates: start: 20170728

REACTIONS (5)
  - Dizziness [Unknown]
  - Hypertension [Unknown]
  - Cerebral cyst [Unknown]
  - Malaise [Unknown]
  - Retching [Unknown]

NARRATIVE: CASE EVENT DATE: 201801
